FAERS Safety Report 21862447 (Version 1)
Quarter: 2023Q1

REPORT INFORMATION
  Report Type: Spontaneous
  Country: KR (occurrence: KR)
  Receive Date: 20230114
  Receipt Date: 20230114
  Transmission Date: 20230418
  Serious: Yes (Death, Hospitalization, Other)
  Sender: FDA-Public Use
  Company Number: KR-CELLTRION INC.-2023KR000256

PATIENT

DRUGS (1)
  1. RITUXIMAB [Suspect]
     Active Substance: RITUXIMAB
     Indication: Microscopic polyangiitis
     Dosage: WEEKLY DOSE OF 375 MG/M2 FOR 4 WEEKS
     Route: 042

REACTIONS (2)
  - Bronchopulmonary aspergillosis [Fatal]
  - Enterocolitis infectious [Unknown]
